FAERS Safety Report 21047535 (Version 1)
Quarter: 2022Q3

REPORT INFORMATION
  Report Type: Spontaneous
  Country: US (occurrence: None)
  Receive Date: 20220706
  Receipt Date: 20220706
  Transmission Date: 20221026
  Serious: Yes (Death, Hospitalization)
  Sender: FDA-Public Use
  Company Number: None

PATIENT
  Age: 63 Year
  Sex: Female
  Weight: 68.7 kg

DRUGS (4)
  1. CAMPTOSAR [Suspect]
     Active Substance: IRINOTECAN HYDROCHLORIDE
     Dates: end: 20220223
  2. ELOXATIN [Suspect]
     Active Substance: OXALIPLATIN
     Dates: end: 20220223
  3. FLUOROURACIL [Suspect]
     Active Substance: FLUOROURACIL
     Dates: end: 20220223
  4. LEUCOVORIN CALCIUM [Suspect]
     Active Substance: LEUCOVORIN CALCIUM
     Dates: end: 20220223

REACTIONS (7)
  - Portal vein thrombosis [None]
  - Mesenteric vein thrombosis [None]
  - Encephalopathy [None]
  - Hyponatraemia [None]
  - Hypokalaemia [None]
  - Hyperbilirubinaemia [None]
  - Hypotension [None]

NARRATIVE: CASE EVENT DATE: 20220625
